FAERS Safety Report 9955019 (Version 2)
Quarter: 2014Q1

REPORT INFORMATION
  Report Type: Report from Study
  Country: US (occurrence: US)
  Receive Date: 20140304
  Receipt Date: 20140304
  Transmission Date: 20141002
  Serious: No
  Sender: FDA-Public Use
  Company Number: US-ABBVIE-13P-163-1060302-00

PATIENT
  Age: 78 Year
  Sex: Female

DRUGS (16)
  1. HUMIRA [Suspect]
     Indication: RHEUMATOID ARTHRITIS
     Route: 058
  2. OXAZEPAM [Concomitant]
     Indication: PRODUCT USED FOR UNKNOWN INDICATION
     Dosage: STARTED TAKING AFTER HUSBAND PASSED, DOESN^T KNOW WHY; PRN
  3. SINGULAIR [Concomitant]
     Indication: HYPERSENSITIVITY
  4. CALCON WHICH IS POTASSIUM TABLETS [Concomitant]
     Indication: PRODUCT USED FOR UNKNOWN INDICATION
  5. FLEXERIL [Concomitant]
     Indication: PAIN
  6. NEURONTIN [Concomitant]
     Indication: NERVE INJURY
  7. NEURONTIN [Concomitant]
     Indication: NEUROPATHY PERIPHERAL
  8. CALCIUM [Concomitant]
     Indication: PRODUCT USED FOR UNKNOWN INDICATION
  9. VITAMIN D [Concomitant]
     Indication: PRODUCT USED FOR UNKNOWN INDICATION
  10. TEMAZEPAM [Concomitant]
     Indication: INSOMNIA
  11. DEXILANT [Concomitant]
     Indication: GASTROOESOPHAGEAL REFLUX DISEASE
     Dosage: EVERY MORNING
  12. MIRAPEX [Concomitant]
     Indication: RESTLESS LEGS SYNDROME
  13. METHOTREXATE [Concomitant]
     Indication: PRODUCT USED FOR UNKNOWN INDICATION
     Dosage: 6 TABLETS EVERY WEEK
  14. SEROQUEL [Concomitant]
     Indication: INSOMNIA
  15. FOLIC ACID [Concomitant]
     Indication: PRODUCT USED FOR UNKNOWN INDICATION
  16. FUROSEMIDE [Concomitant]
     Indication: PRODUCT USED FOR UNKNOWN INDICATION

REACTIONS (2)
  - Injection site pain [Not Recovered/Not Resolved]
  - Injection site bruising [Unknown]
